FAERS Safety Report 9647029 (Version 2)
Quarter: 2013Q4

REPORT INFORMATION
  Report Type: Spontaneous
  Country: US (occurrence: US)
  Receive Date: 20131027
  Receipt Date: 20131027
  Transmission Date: 20140711
  Serious: Yes (Other)
  Sender: FDA-Public Use
  Company Number: US-NAPPMUNDI-USA-2013-0102784

PATIENT
  Age: 36 Year
  Sex: Female

DRUGS (3)
  1. OXYCONTIN (NDA 22-272) [Suspect]
     Indication: DRUG ABUSE
     Dosage: 20-30 TABLETS, SEE TEXT
     Route: 042
     Dates: start: 201208, end: 201303
  2. OXYCONTIN (NDA 22-272) [Suspect]
     Indication: PAIN
  3. METHADONE [Concomitant]
     Indication: PAIN
     Dosage: 100 MG, DAILY
     Dates: start: 201303

REACTIONS (5)
  - Drug abuse [Unknown]
  - Skin lesion [Recovered/Resolved]
  - Inadequate analgesia [Recovered/Resolved]
  - Pruritus [Recovered/Resolved]
  - Constipation [Not Recovered/Not Resolved]
